FAERS Safety Report 12947758 (Version 1)
Quarter: 2016Q4

REPORT INFORMATION
  Report Type: Spontaneous
  Country: US (occurrence: US)
  Receive Date: 20161116
  Receipt Date: 20161116
  Transmission Date: 20170207
  Serious: No
  Sender: FDA-Public Use
  Company Number: US-BAUSCH-BL-2016-018687

PATIENT
  Sex: Female
  Weight: 72.64 kg

DRUGS (3)
  1. NIFEDICAL XL [Suspect]
     Active Substance: NIFEDIPINE
     Indication: HYPERTENSION
     Route: 048
     Dates: start: 2012
  2. LISINOPRIL. [Concomitant]
     Active Substance: LISINOPRIL
     Indication: HYPERTENSION
     Route: 048
     Dates: start: 2015
  3. NO DRUG NAME [Concomitant]

REACTIONS (3)
  - Weight increased [Unknown]
  - Medication residue present [Unknown]
  - Glucose tolerance impaired [Unknown]
